FAERS Safety Report 17617507 (Version 1)
Quarter: 2020Q2

REPORT INFORMATION
  Report Type: Spontaneous
  Country: JP (occurrence: JP)
  Receive Date: 20200402
  Receipt Date: 20200402
  Transmission Date: 20200713
  Serious: Yes (Other)
  Sender: FDA-Public Use
  Company Number: JP-BAUSCH-BL-2020-008586

PATIENT
  Age: 11 Year
  Sex: Male

DRUGS (4)
  1. ALL-TRANS RETINOIC ACID [Suspect]
     Active Substance: TRETINOIN
     Indication: ACUTE PROMYELOCYTIC LEUKAEMIA
     Dosage: COMBINED INDUCTION CHEMOTHERAPY
     Route: 065
  2. ARSENIC TRIOXIDE. [Concomitant]
     Active Substance: ARSENIC TRIOXIDE
     Indication: ACUTE PROMYELOCYTIC LEUKAEMIA
  3. ALL-TRANS RETINOIC ACID [Suspect]
     Active Substance: TRETINOIN
     Route: 065
  4. ALL-TRANS RETINOIC ACID [Suspect]
     Active Substance: TRETINOIN
     Dosage: RESTARTED
     Route: 065

REACTIONS (2)
  - Idiopathic intracranial hypertension [Recovered/Resolved]
  - Treatment failure [Unknown]
